FAERS Safety Report 5662217-8 (Version None)
Quarter: 2008Q1

REPORT INFORMATION
  Report Type: 
  Country: None (occurrence: None)
  Receive Date: 20080312
  Receipt Date: 20080307
  Transmission Date: 20080703
  Serious: Yes (Life-Threatening, Hospitalization)
  Sender: FDA-Public Use
  Company Number: US-GILEAD-2008-0015592

PATIENT
  Sex: Female

DRUGS (11)
  1. LETAIRIS [Suspect]
     Route: 048
     Dates: start: 20080219, end: 20080307
  2. WARFARIN SODIUM [Concomitant]
     Route: 048
  3. ANAGRELIDE HCL [Concomitant]
     Route: 048
  4. CARDIZEM [Concomitant]
     Route: 048
  5. AVALIDE [Concomitant]
     Route: 048
  6. PROPANOLOL HCL [Concomitant]
     Route: 048
  7. FUROSEMIDE [Concomitant]
     Route: 048
  8. KLOR-CON [Concomitant]
     Route: 048
  9. HYDROXYUREA [Concomitant]
  10. REQUIP [Concomitant]
     Route: 048
  11. ALPRAZOLAM [Concomitant]
     Route: 048

REACTIONS (1)
  - BLOOD PRESSURE DECREASED [None]
